FAERS Safety Report 5529866-9 (Version None)
Quarter: 2007Q4

REPORT INFORMATION
  Report Type: 
  Country: None (occurrence: None)
  Receive Date: 20071129
  Receipt Date: 20070921
  Transmission Date: 20080405
  Serious: No
  Sender: FDA-Public Use
  Company Number: US-ABBOTT-07P-163-0418014-00

PATIENT
  Age: 46 Year
  Sex: Female
  Weight: 72.64 kg

DRUGS (5)
  1. MERIDIA [Suspect]
     Indication: GASTRIC DISORDER
     Route: 048
     Dates: start: 20070911
  2. MERIDIA [Suspect]
     Indication: WEIGHT CONTROL
  3. ARMOUR [Concomitant]
     Indication: AUTOIMMUNE THYROIDITIS
     Route: 048
     Dates: start: 19770101
  4. PANTOPRAZOLE SODIUM [Concomitant]
     Indication: GASTRIC DISORDER
     Route: 048
     Dates: start: 20060101
  5. LORATADINE [Concomitant]
     Indication: HYPERSENSITIVITY
     Route: 048
     Dates: start: 20070101

REACTIONS (3)
  - FEELING ABNORMAL [None]
  - HEART RATE INCREASED [None]
  - SPEECH DISORDER [None]
